FAERS Safety Report 8375573-7 (Version None)
Quarter: 2012Q2

REPORT INFORMATION
  Report Type: 
  Country: None (occurrence: None)
  Receive Date: 20120517
  Receipt Date: 20120517
  Transmission Date: 20120825
  Serious: Yes (Hospitalization)
  Sender: FDA-Public Use
  Company Number: None

PATIENT
  Sex: Male
  Weight: 88 kg

DRUGS (1)
  1. INTRON A [Suspect]
     Dosage: 336 MU
     Dates: end: 20120509

REACTIONS (5)
  - CARDIAC ARREST [None]
  - UNRESPONSIVE TO STIMULI [None]
  - INFUSION RELATED REACTION [None]
  - CIRCULATORY COLLAPSE [None]
  - PULSE ABSENT [None]
